FAERS Safety Report 7955460-6 (Version None)
Quarter: 2011Q4

REPORT INFORMATION
  Report Type: 
  Country: None (occurrence: None)
  Receive Date: 20111202
  Receipt Date: 20111128
  Transmission Date: 20120403
  Serious: Yes (Hospitalization)
  Sender: FDA-Public Use
  Company Number: JP-ABBOTT-11P-087-0861549-00

PATIENT
  Sex: Female
  Weight: 68 kg

DRUGS (7)
  1. CYCLOSPORINE [Concomitant]
     Indication: PSORIASIS
     Route: 048
     Dates: start: 20100616
  2. CLINDAMYCIN [Concomitant]
     Indication: ACNE
     Route: 061
     Dates: start: 20110901, end: 20110907
  3. HUMIRA [Suspect]
     Dates: start: 20110818, end: 20110929
  4. MAXACALCITOL [Concomitant]
     Indication: PSORIASIS
     Route: 061
     Dates: start: 20100612
  5. CYCLOSPORINE [Concomitant]
     Route: 048
     Dates: start: 20100626
  6. HUMIRA [Suspect]
     Indication: PRODUCT USED FOR UNKNOWN INDICATION
     Route: 058
     Dates: start: 20110804, end: 20110804
  7. CYCLOSPORINE [Concomitant]
     Route: 048
     Dates: start: 20110729, end: 20110810

REACTIONS (5)
  - DYSPNOEA [None]
  - CONDITION AGGRAVATED [None]
  - FACE OEDEMA [None]
  - PRURITUS [None]
  - ERYTHEMA [None]
